FAERS Safety Report 7345630-2 (Version None)
Quarter: 2011Q1

REPORT INFORMATION
  Report Type: 
  Country: None (occurrence: None)
  Receive Date: 20110310
  Receipt Date: 20110303
  Transmission Date: 20110831
  Serious: Yes (Hospitalization)
  Sender: FDA-Public Use
  Company Number: A0916461A

PATIENT
  Age: 58 Year
  Sex: Female

DRUGS (7)
  1. ATIVAN [Concomitant]
  2. PROZAC [Concomitant]
  3. SYNTHROID [Concomitant]
  4. LAMICTAL XR [Suspect]
     Indication: EPILEPSY
     Dosage: 100MG PER DAY
     Route: 048
     Dates: start: 20101215
  5. SEROQUEL [Concomitant]
  6. VALPROIC ACID [Suspect]
     Dosage: 750MG VARIABLE DOSE
     Route: 065
  7. ZETIA [Concomitant]

REACTIONS (4)
  - AMNESIA [None]
  - GAIT DISTURBANCE [None]
  - DIZZINESS [None]
  - VERTIGO [None]
